FAERS Safety Report 6877611-7 (Version None)
Quarter: 2010Q3

REPORT INFORMATION
  Report Type: 
  Country: None (occurrence: None)
  Receive Date: 20100727
  Receipt Date: 20100331
  Transmission Date: 20110219
  Serious: No
  Sender: FDA-Public Use
  Company Number: US-ABBOTT-10P-163-0636635-00

PATIENT
  Sex: Female
  Weight: 59.02 kg

DRUGS (5)
  1. SYNTHROID [Suspect]
     Indication: HYPOTHYROIDISM
     Dosage: 2 AND 1/2 TABLETS DAILY
     Route: 048
     Dates: start: 19960101
  2. SYNTHROID [Suspect]
     Dosage: LOWER DOSE
     Route: 048
  3. CITRULLINE [Concomitant]
     Indication: PRODUCT USED FOR UNKNOWN INDICATION
  4. VITAMINS [Concomitant]
     Indication: VITAMIN SUPPLEMENTATION
  5. UNKNOWN MEDICATION [Concomitant]
     Indication: ASTHMA

REACTIONS (11)
  - ABDOMINAL PAIN [None]
  - DEPRESSED MOOD [None]
  - DIARRHOEA [None]
  - DIZZINESS [None]
  - FEELING ABNORMAL [None]
  - GLUCOSE TOLERANCE IMPAIRED [None]
  - HEADACHE [None]
  - NAUSEA [None]
  - PAIN IN EXTREMITY [None]
  - PALPITATIONS [None]
  - PARAESTHESIA [None]
